FAERS Safety Report 6863424-9 (Version None)
Quarter: 2010Q3

REPORT INFORMATION
  Report Type: 
  Country: None (occurrence: None)
  Receive Date: 20100721
  Receipt Date: 20100711
  Transmission Date: 20110219
  Serious: Yes (Other)
  Sender: FDA-Public Use
  Company Number: CN-PFIZER INC-2010086153

PATIENT
  Age: 82 Year
  Sex: Male

DRUGS (5)
  1. VFEND [Suspect]
     Indication: FUNGAL INFECTION
     Dosage: UNK
     Route: 041
     Dates: start: 20100701, end: 20100701
  2. VFEND [Suspect]
     Dosage: 0.2 G, 2X/DAY
     Route: 048
     Dates: start: 20100701
  3. DIFLUCAN [Concomitant]
     Indication: FUNGAL INFECTION
     Dosage: UNK
     Route: 041
     Dates: end: 20100701
  4. IMIPENEM AND CILASTATIN [Concomitant]
     Dosage: UNK
     Dates: start: 20100101
  5. ZYVOX [Concomitant]
     Dosage: UNK
     Dates: start: 20100101

REACTIONS (3)
  - BLOOD BILIRUBIN INCREASED [None]
  - FUNGAL INFECTION [None]
  - JAUNDICE [None]
